FAERS Safety Report 6968720-2 (Version None)
Quarter: 2010Q3

REPORT INFORMATION
  Report Type: 
  Country: None (occurrence: None)
  Receive Date: 20100907
  Receipt Date: 20100830
  Transmission Date: 20110219
  Serious: Yes (Hospitalization)
  Sender: FDA-Public Use
  Company Number: CM-MERCK-1008USA04087

PATIENT
  Age: 29 Year
  Sex: Male
  Weight: 73 kg

DRUGS (1)
  1. STROMECTOL [Suspect]
     Route: 048
     Dates: start: 20100207, end: 20100207

REACTIONS (7)
  - ARTHRALGIA [None]
  - DIARRHOEA [None]
  - MALARIA [None]
  - MYALGIA [None]
  - PYREXIA [None]
  - VERTIGO [None]
  - VOMITING [None]
